FAERS Safety Report 15311388 (Version 1)
Quarter: 2018Q3

REPORT INFORMATION
  Report Type: Spontaneous
  Country: US (occurrence: US)
  Receive Date: 20180814
  Receipt Date: 20180814
  Transmission Date: 20181010
  Serious: No
  Sender: FDA-Public Use
  Company Number: None

PATIENT
  Age: 50 Year
  Sex: Female

DRUGS (1)
  1. EPCLUSA [Suspect]
     Active Substance: SOFOSBUVIR\VELPATASVIR
     Indication: HEPATITIS C
     Dosage: 10/26/2018
     Dates: start: 20180801, end: 2018

REACTIONS (4)
  - Depression [None]
  - Insomnia [None]
  - Loss of consciousness [None]
  - Condition aggravated [None]

NARRATIVE: CASE EVENT DATE: 20180814
